FAERS Safety Report 22018820 (Version 1)
Quarter: 2023Q1

REPORT INFORMATION
  Report Type: Spontaneous
  Country: US (occurrence: US)
  Receive Date: 20230222
  Receipt Date: 20230222
  Transmission Date: 20230418
  Serious: Yes (Hospitalization)
  Sender: FDA-Public Use
  Company Number: US-STRIDES ARCOLAB LIMITED-2023SP000722

PATIENT
  Age: 41 Year
  Sex: Female

DRUGS (13)
  1. CYCLOSPORINE [Suspect]
     Active Substance: CYCLOSPORINE
     Indication: Rash maculo-papular
     Dosage: UNK, 100 ORALLY EVERY 12 HOURS
     Route: 048
  2. HYDROCORTISONE [Suspect]
     Active Substance: HYDROCORTISONE
     Indication: Rash maculo-papular
     Dosage: UNK, OINTMENT, INTRAVAGINAL
     Route: 061
  3. SOLU-MEDROL [Suspect]
     Active Substance: METHYLPREDNISOLONE SODIUM SUCCINATE
     Indication: Rash maculo-papular
     Dosage: 125 MILLIGRAM, BID
     Route: 042
  4. BETAMETHASONE DIPROPIONATE [Suspect]
     Active Substance: BETAMETHASONE DIPROPIONATE
     Indication: Rash maculo-papular
     Dosage: UNK, BID
     Route: 061
  5. CLOBETASOL [Suspect]
     Active Substance: CLOBETASOL
     Indication: Rash maculo-papular
     Dosage: UNK, BID
     Route: 061
  6. SODIUM CHLORIDE [Concomitant]
     Active Substance: SODIUM CHLORIDE
     Indication: Rash maculo-papular
     Dosage: 1000 MILLILITER (75ML/HR)
     Route: 042
  7. VALACYCLOVIR [Concomitant]
     Active Substance: VALACYCLOVIR HYDROCHLORIDE
     Indication: Rash maculo-papular
     Dosage: 500 MILLIGRAM, BID
     Route: 048
  8. BENADRYL [Concomitant]
     Active Substance: DIPHENHYDRAMINE HYDROCHLORIDE
     Indication: Rash maculo-papular
     Dosage: 50 MILLIGRAM, PRN
     Route: 042
  9. VASELINE PURE [Concomitant]
     Active Substance: PETROLATUM
     Indication: Rash maculo-papular
     Dosage: UNK, TID
     Route: 061
  10. LIDOCAINE [Concomitant]
     Active Substance: LIDOCAINE
     Indication: Rash maculo-papular
     Dosage: UNK, TID
     Route: 061
  11. Aluminium hydroxide;Diphenhydramine hydrochloride;Lidocaine hydrochlor [Concomitant]
     Indication: Rash maculo-papular
     Dosage: 15 MILLILITER, TID
     Route: 048
  12. OXYCODONE [Concomitant]
     Active Substance: OXYCODONE
     Indication: Rash maculo-papular
     Dosage: 5 MILLIGRAM, EVERY 4 HRS
     Route: 042
  13. MORPHINE [Concomitant]
     Active Substance: MORPHINE
     Indication: Rash maculo-papular
     Dosage: 2 MILLIGRAM, EVERY 2 HRS
     Route: 042

REACTIONS (4)
  - Staphylococcal sepsis [Unknown]
  - Sepsis [Unknown]
  - Bacteraemia [Unknown]
  - Drug ineffective for unapproved indication [Unknown]
